FAERS Safety Report 10262853 (Version 2)
Quarter: 2014Q2

REPORT INFORMATION
  Report Type: Report from Study
  Country: US (occurrence: US)
  Receive Date: 20140626
  Receipt Date: 20140626
  Transmission Date: 20141212
  Serious: Yes (Life-Threatening, Other)
  Sender: FDA-Public Use
  Company Number: US-MYLANLABS-2013S1019507

PATIENT
  Age: 52 Year
  Sex: Male
  Weight: 65.77 kg

DRUGS (10)
  1. CLOZAPINE TABLETS [Suspect]
     Indication: SCHIZOPHRENIA
     Route: 048
     Dates: start: 20130618, end: 20130829
  2. CLOZAPINE TABLETS [Suspect]
     Indication: SCHIZOPHRENIA
     Route: 048
     Dates: start: 20130618, end: 20130829
  3. COGENTIN [Concomitant]
  4. WELLBUTRIN SR [Concomitant]
  5. SERTRALINE [Concomitant]
  6. ADVAIR DISKUS [Concomitant]
  7. PROAIR /00139502/ [Concomitant]
  8. TAMSULOSIN [Concomitant]
  9. LIPITOR [Concomitant]
  10. VITAMIN E [Concomitant]

REACTIONS (1)
  - Agranulocytosis [Recovered/Resolved]
